FAERS Safety Report 9241806 (Version 2)
Quarter: 2014Q3

REPORT INFORMATION
  Report Type: Spontaneous
  Country: US (occurrence: US)
  Receive Date: 20130419
  Receipt Date: 20140905
  Transmission Date: 20150326
  Serious: Yes (Other)
  Sender: FDA-Public Use
  Company Number: PHEH2013US008603

PATIENT
  Sex: Male

DRUGS (4)
  1. DIOVAN [Suspect]
     Active Substance: VALSARTAN
     Dosage: 320 MG, UNK
     Dates: start: 20100129
  2. HYDROCHLOROTHIAZIDE. [Concomitant]
     Active Substance: HYDROCHLOROTHIAZIDE
     Dosage: 25 MG, ONCE/SINGLE, DAILY
     Dates: start: 20100802
  3. TEKTURNA [Suspect]
     Active Substance: ALISKIREN HEMIFUMARATE
     Dosage: 300 MG, ONCE/SINGLE, DAILY
     Route: 048
     Dates: start: 20100129
  4. CRESTOR [Concomitant]
     Active Substance: ROSUVASTATIN CALCIUM
     Dosage: 20 MG, ONCE/SINGLE, DAILY
     Dates: start: 20100217

REACTIONS (30)
  - Renal failure acute [Unknown]
  - Accelerated hypertension [Unknown]
  - Injury [Unknown]
  - Essential hypertension [Unknown]
  - Cerebrovascular accident [Unknown]
  - IIIrd nerve paralysis [Unknown]
  - Anxiety [Unknown]
  - Nephrogenic anaemia [Unknown]
  - Nephrotic syndrome [Unknown]
  - Metabolic alkalosis [Unknown]
  - Vitamin D deficiency [Unknown]
  - Type 2 diabetes mellitus [Unknown]
  - Diabetic neuropathy [Unknown]
  - Hydronephrosis [Unknown]
  - Hypertension [Unknown]
  - VIIth nerve paralysis [Unknown]
  - Renal atrophy [Unknown]
  - Retinopathy [Unknown]
  - Nephrosclerosis [Unknown]
  - Generalised oedema [Unknown]
  - Proteinuria [Unknown]
  - Secondary hyperthyroidism [Unknown]
  - Fatigue [Unknown]
  - Hyperphosphataemia [Unknown]
  - Polyuria [Unknown]
  - Renal failure chronic [Unknown]
  - Pain [Unknown]
  - Anhedonia [Unknown]
  - Temperature intolerance [Unknown]
  - Type V hyperlipidaemia [Unknown]
